FAERS Safety Report 8141196-8 (Version None)
Quarter: 2012Q1

REPORT INFORMATION
  Report Type: 
  Country: None (occurrence: None)
  Receive Date: 20120216
  Receipt Date: 20120206
  Transmission Date: 20120608
  Serious: Yes (Hospitalization, Other)
  Sender: FDA-Public Use
  Company Number: US-SANOFI-AVENTIS-2011SA065119

PATIENT
  Age: 68 Year
  Sex: Female
  Weight: 52.3 kg

DRUGS (23)
  1. PLAVIX [Suspect]
     Indication: ANTICOAGULANT THERAPY
     Route: 048
     Dates: start: 20110429, end: 20110513
  2. ARMODAFINIL [Concomitant]
     Indication: FUNGAL INFECTION
     Route: 048
  3. NEXIUM [Concomitant]
     Route: 048
  4. ALBUTEROL SULFATE AUTOHALER [Concomitant]
  5. ISOPROPYL ALCOHOL [Concomitant]
     Route: 061
  6. GLIMEPIRIDE [Concomitant]
  7. LISINOPRIL [Concomitant]
  8. HYDROCODONE [Concomitant]
     Indication: PAIN
     Route: 048
  9. CEFUROXIME [Concomitant]
     Route: 048
  10. VALSARTAN [Concomitant]
     Indication: BLOOD PRESSURE
     Route: 048
  11. ALL OTHER THERAPEUTIC PRODUCTS [Concomitant]
  12. HYDROXYZINE HCL [Concomitant]
     Dates: start: 20110501
  13. PLAVIX [Suspect]
     Route: 048
     Dates: start: 20110429, end: 20110513
  14. ZIAC [Concomitant]
     Indication: HYPERTENSION
     Route: 048
  15. ALLEGRA-D 12 HOUR [Concomitant]
     Route: 048
  16. DOXYCYCLINE HYCLATE [Concomitant]
     Dates: start: 20110501
  17. ALL OTHER THERAPEUTIC PRODUCTS [Concomitant]
  18. ALBUTEROL SULFATE AUTOHALER [Concomitant]
     Indication: WHEEZING
  19. ALBUTEROL SULFATE AUTOHALER [Concomitant]
  20. PLAVIX [Suspect]
     Route: 048
     Dates: start: 20110429, end: 20110513
  21. NEXIUM [Concomitant]
     Route: 048
  22. POTASSIUM CHLORIDE [Concomitant]
     Indication: NUTRITIONAL SUPPORT
     Route: 048
  23. ALL OTHER THERAPEUTIC PRODUCTS [Concomitant]
     Indication: PAIN

REACTIONS (9)
  - SCAB [None]
  - LOCALISED INFECTION [None]
  - DRUG HYPERSENSITIVITY [None]
  - DIZZINESS [None]
  - BLISTER [None]
  - PRURITUS [None]
  - GANGRENE [None]
  - WEIGHT DECREASED [None]
  - SKIN BURNING SENSATION [None]
